FAERS Safety Report 17570917 (Version 2)
Quarter: 2020Q1

REPORT INFORMATION
  Report Type: Spontaneous
  Country: US (occurrence: US)
  Receive Date: 20200323
  Receipt Date: 20200327
  Transmission Date: 20200409
  Serious: Yes (Hospitalization)
  Sender: FDA-Public Use
  Company Number: US-PFIZER INC-2020119165

PATIENT
  Sex: Female

DRUGS (1)
  1. CIPROFLOXACIN. [Suspect]
     Active Substance: CIPROFLOXACIN
     Dosage: UNK
     Route: 048
     Dates: start: 201907

REACTIONS (18)
  - Pain [Unknown]
  - Tinnitus [Unknown]
  - Cystitis interstitial [Unknown]
  - Oral discomfort [Unknown]
  - Tendon pain [Unknown]
  - Alopecia [Unknown]
  - Oesophageal pain [Not Recovered/Not Resolved]
  - Hiatus hernia [Unknown]
  - Gastritis [Unknown]
  - Condition aggravated [Unknown]
  - Visual impairment [Unknown]
  - Cystitis noninfective [Unknown]
  - Muscle spasms [Not Recovered/Not Resolved]
  - Irritable bowel syndrome [Unknown]
  - Nerve injury [Unknown]
  - Gastrointestinal disorder [Unknown]
  - Tooth fracture [Unknown]
  - Dry mouth [Unknown]

NARRATIVE: CASE EVENT DATE: 201908
